FAERS Safety Report 24431870 (Version 2)
Quarter: 2024Q4

REPORT INFORMATION
  Report Type: Spontaneous
  Country: US (occurrence: US)
  Receive Date: 20241014
  Receipt Date: 20241015
  Transmission Date: 20250115
  Serious: No
  Sender: ABBVIE
  Company Number: US-ABBVIE-5954862

PATIENT
  Age: 68 Year
  Sex: Female
  Weight: 56.699 kg

DRUGS (4)
  1. BOTOX COSMETIC [Suspect]
     Active Substance: ONABOTULINUMTOXINA
     Indication: Skin wrinkling
     Dosage: TIME INTERVAL: AS NECESSARY: COSMETIC
     Route: 030
     Dates: start: 20240923, end: 20240923
  2. BOTOX COSMETIC [Suspect]
     Active Substance: ONABOTULINUMTOXINA
     Indication: Skin wrinkling
     Dosage: TIME INTERVAL: AS NECESSARY: COSMETIC
     Route: 030
     Dates: start: 20240923, end: 20240923
  3. BOTOX COSMETIC [Suspect]
     Active Substance: ONABOTULINUMTOXINA
     Indication: Skin wrinkling
     Dosage: TIME INTERVAL: AS NECESSARY: COSMETIC
     Route: 030
     Dates: start: 20240923, end: 20240923
  4. BOTOX COSMETIC [Suspect]
     Active Substance: ONABOTULINUMTOXINA
     Indication: Skin wrinkling
     Dosage: TIME INTERVAL: AS NECESSARY: COSMETIC
     Route: 030
     Dates: start: 20240923, end: 20240923

REACTIONS (1)
  - Atrophy [Not Recovered/Not Resolved]

NARRATIVE: CASE EVENT DATE: 20240930
